FAERS Safety Report 17226888 (Version 1)
Quarter: 2020Q1

REPORT INFORMATION
  Report Type: Spontaneous
  Country: DE (occurrence: DE)
  Receive Date: 20200102
  Receipt Date: 20200102
  Transmission Date: 20200409
  Serious: Yes (Hospitalization)
  Sender: FDA-Public Use
  Company Number: DE-TEVA-2019-DE-1160255

PATIENT
  Age: 80 Year
  Sex: Female
  Weight: 56 kg

DRUGS (5)
  1. GEMCITABINE. [Suspect]
     Active Substance: GEMCITABINE
     Dosage: NK MG, ACCORDING TO THE SCHEME
  2. PACLITAXEL. [Suspect]
     Active Substance: PACLITAXEL
     Dosage: NK MG, ACCORDING TO THE SCHEME
  3. CANDECOR [Concomitant]
     Active Substance: CANDESARTAN CILEXETIL
     Dosage: 16 MG, 0.5-0-0-0
  4. MCP AL 10 [Concomitant]
     Dosage: 10 MG, 1-1-1-0
  5. ASPIRIN. [Concomitant]
     Active Substance: ASPIRIN
     Dosage: 100 MILLIGRAM DAILY; 100 MG, 0-1-0-0

REACTIONS (3)
  - Paraesthesia [Unknown]
  - Dizziness [Unknown]
  - Gait disturbance [Unknown]
